FAERS Safety Report 11493756 (Version 1)
Quarter: 2015Q3

REPORT INFORMATION
  Report Type: Spontaneous
  Country: US (occurrence: US)
  Receive Date: 20150911
  Receipt Date: 20150911
  Transmission Date: 20151125
  Serious: Yes (Other)
  Sender: FDA-Public Use
  Company Number: US-ROCHE-1045800

PATIENT
  Sex: Female

DRUGS (4)
  1. PEGASYS [Suspect]
     Active Substance: PEGINTERFERON ALFA-2A
     Indication: PRODUCT USED FOR UNKNOWN INDICATION
     Route: 058
     Dates: start: 20120123
  2. RIBAVIRIN. [Suspect]
     Active Substance: RIBAVIRIN
     Route: 065
  3. RIBAVIRIN. [Suspect]
     Active Substance: RIBAVIRIN
     Indication: PRODUCT USED FOR UNKNOWN INDICATION
     Route: 048
     Dates: start: 20120123
  4. TELAPREVIR [Suspect]
     Active Substance: TELAPREVIR
     Indication: PRODUCT USED FOR UNKNOWN INDICATION
     Route: 065
     Dates: start: 20120123

REACTIONS (5)
  - Red blood cell count decreased [Unknown]
  - Nausea [Unknown]
  - Dry mouth [Unknown]
  - Upper respiratory tract infection [Unknown]
  - Vomiting [Unknown]
